FAERS Safety Report 6751155-5 (Version None)
Quarter: 2010Q2

REPORT INFORMATION
  Report Type: 
  Country: None (occurrence: None)
  Receive Date: 20100602
  Receipt Date: 20100524
  Transmission Date: 20101027
  Serious: Yes (Other)
  Sender: FDA-Public Use
  Company Number: FR-BRISTOL-MYERS SQUIBB COMPANY-15119555

PATIENT
  Age: 79 Year
  Sex: Female

DRUGS (9)
  1. IRBESARTAN [Suspect]
  2. SITAGLIPTIN PHOSPHATE [Interacting]
     Indication: TYPE 2 DIABETES MELLITUS
  3. ATORVASTATIN [Concomitant]
  4. ATENOLOL [Concomitant]
  5. CLOPIDOGREL BISULFATE [Concomitant]
  6. LYSINE ACETYLSALICYLATE [Concomitant]
  7. HYDROXYZINE [Concomitant]
  8. CLOMIPRAMINE [Concomitant]
  9. LANSOPRAZOLE [Concomitant]

REACTIONS (2)
  - ANGIOEDEMA [None]
  - DRUG INTERACTION [None]
